FAERS Safety Report 13732407 (Version 2)
Quarter: 2019Q1

REPORT INFORMATION
  Report Type: Report from Study
  Country: US (occurrence: US)
  Receive Date: 20170707
  Receipt Date: 20190102
  Transmission Date: 20190417
  Serious: No
  Sender: FDA-Public Use
  Company Number: US-SA-2017SA105936

PATIENT
  Age: 45 Year
  Sex: Male

DRUGS (2)
  1. DUPILUMAB [Suspect]
     Active Substance: DUPILUMAB
     Dosage: 300 UNK
     Route: 058
     Dates: start: 201706
  2. DUPILUMAB [Suspect]
     Active Substance: DUPILUMAB
     Indication: DERMATITIS ATOPIC
     Dosage: 600 MG, 1X
     Route: 058
     Dates: start: 20170601, end: 20170601

REACTIONS (5)
  - Eyelids pruritus [Recovering/Resolving]
  - Erythema of eyelid [Recovering/Resolving]
  - Blepharitis [Recovering/Resolving]
  - Eye irritation [Recovering/Resolving]
  - Conjunctivitis [Recovering/Resolving]
